FAERS Safety Report 5264303-3 (Version None)
Quarter: 2007Q1

REPORT INFORMATION
  Report Type: 
  Country: None (occurrence: None)
  Receive Date: 20070309
  Receipt Date: 20070222
  Transmission Date: 20070707
  Serious: Yes (Other)
  Sender: FDA-Public Use
  Company Number: 237729

PATIENT
  Age: 63 Year
  Sex: Female

DRUGS (1)
  1. MABTHERA( RITUXIMAB ) CONC FOR SOLUTION FOR INFUSION [Suspect]
     Indication: RHEUMATOID ARTHRITIS
     Dosage: 500 MG, DAYS 1+15, INTRAVENOUS
     Route: 042
     Dates: start: 20061130

REACTIONS (1)
  - OEDEMA PERIPHERAL [None]
